FAERS Safety Report 9779003 (Version 2)
Quarter: 2013Q4

REPORT INFORMATION
  Report Type: Report from Study
  Country: AU (occurrence: AU)
  Receive Date: 20131223
  Receipt Date: 20131223
  Transmission Date: 20140711
  Serious: Yes (Life-Threatening, Hospitalization, Other)
  Sender: FDA-Public Use
  Company Number: AU-ASTRAZENECA-2012SE60968

PATIENT
  Age: 13203 Day
  Sex: Female

DRUGS (6)
  1. SEROQUEL XR [Suspect]
     Indication: PSYCHOTIC DISORDER
     Dosage: 50-200 MG DAILY, STARTED PRE-PREGNANCY
     Route: 048
  2. RISPERIDONE [Suspect]
     Indication: PSYCHOTIC DISORDER
     Dosage: 2 MG DAILY, STARTED AT 21/40 WEEKS
     Route: 048
  3. BLACKMORES P+BF FORMULA [Concomitant]
     Indication: VITAMIN SUPPLEMENTATION
     Route: 048
  4. VITAMIN B12 COMPLEX [Concomitant]
     Indication: VITAMIN SUPPLEMENTATION
     Dosage: 1-2 TABLETS/DAY, INITIATED AT 1ST TRIMESTER AND WAS ONGOING DURING ALL PREGNANCY
     Route: 048
  5. FOLIC ACID [Concomitant]
     Indication: PROPHYLAXIS
     Route: 048
  6. FLUOXETINE [Concomitant]
     Indication: ANTIDEPRESSANT THERAPY
     Dosage: 20 MG DAILY, STARTED: PRE-PREGNANCY, STOPPED AT 20/40 WEEKS
     Route: 048

REACTIONS (2)
  - Exposure during pregnancy [Recovered/Resolved]
  - Gestational diabetes [Recovered/Resolved]
